FAERS Safety Report 6987175-5 (Version None)
Quarter: 2010Q3

REPORT INFORMATION
  Report Type: 
  Country: None (occurrence: None)
  Receive Date: 20100916
  Receipt Date: 20100907
  Transmission Date: 20110219
  Serious: Yes (Other)
  Sender: FDA-Public Use
  Company Number: US-PFIZER INC-2010113637

PATIENT
  Sex: Female
  Weight: 111.1 kg

DRUGS (5)
  1. SUTENT [Suspect]
     Indication: RENAL CANCER
     Dosage: 25 MG, EVERY OTHER DAY
     Route: 048
     Dates: start: 20100801
  2. ALLOPURINOL [Concomitant]
     Indication: GOUT
     Dosage: 100 MG, 2X/DAY
  3. PREDNISONE [Concomitant]
     Indication: INFLAMMATION
     Dosage: UNK
  4. ACEBUTOLOL [Concomitant]
     Indication: HYPERTENSION
     Dosage: 600 MG, UNK
  5. SITAGLIPTIN [Concomitant]
     Indication: GLUCOSE TOLERANCE IMPAIRED
     Dosage: 100 MG, UNK

REACTIONS (1)
  - GOUT [None]
